FAERS Safety Report 4404345-0 (Version None)
Quarter: 2004Q3

REPORT INFORMATION
  Report Type: 
  Country: None (occurrence: None)
  Receive Date: 20040721
  Receipt Date: 20040721
  Transmission Date: 20050211
  Serious: Yes (Other)
  Sender: FDA-Public Use
  Company Number: None

PATIENT
  Age: 59 Year
  Sex: Male
  Weight: 95.2554 kg

DRUGS (2)
  1. BENICAR HCT [Suspect]
     Indication: BLOOD PRESSURE
     Dosage: 40 MG/12.5 MG QD
     Dates: start: 20040615
  2. HYDROCHLOROTHIAZIDE [Concomitant]

REACTIONS (2)
  - OROPHARYNGEAL SWELLING [None]
  - SWELLING FACE [None]
